FAERS Safety Report 4386535-9 (Version None)
Quarter: 2004Q2

REPORT INFORMATION
  Report Type: 
  Country: None (occurrence: None)
  Receive Date: 20040629
  Receipt Date: 20040622
  Transmission Date: 20050107
  Serious: Yes (Other)
  Sender: FDA-Public Use
  Company Number: 200416288GDDC

PATIENT
  Age: 67 Year
  Sex: Male

DRUGS (6)
  1. ENOXAPARIN SODIUM [Suspect]
     Indication: DEEP VENOUS THROMBOSIS PROPHYLAXIS
     Route: 058
     Dates: start: 20040602, end: 20040604
  2. LACTULOSE [Concomitant]
     Route: 048
     Dates: start: 20040602
  3. FLONASE [Concomitant]
     Route: 045
     Dates: start: 19990101
  4. FERROUS GLUCONATE [Concomitant]
     Route: 048
     Dates: start: 20040602
  5. LIPITOR [Concomitant]
     Dosage: DOSE: UNK
     Route: 048
     Dates: start: 20020101
  6. PERCOCET [Concomitant]
     Dosage: DOSE: UNK
     Route: 048
     Dates: start: 20040603

REACTIONS (6)
  - ASPARTATE AMINOTRANSFERASE INCREASED [None]
  - FEELING COLD [None]
  - HYPOCALCAEMIA [None]
  - LUNG INFILTRATION [None]
  - PULMONARY EMBOLISM [None]
  - TREMOR [None]
